FAERS Safety Report 24567624 (Version 1)
Quarter: 2024Q4

REPORT INFORMATION
  Report Type: Spontaneous
  Country: CN (occurrence: CN)
  Receive Date: 20241031
  Receipt Date: 20241031
  Transmission Date: 20250115
  Serious: Yes (Hospitalization)
  Sender: BEIGENE
  Company Number: CN-BEIGENE-BGN-2024-016895

PATIENT

DRUGS (6)
  1. TISLELIZUMAB [Suspect]
     Active Substance: TISLELIZUMAB
     Indication: Squamous cell carcinoma of the hypopharynx
     Dosage: 200 MILLIGRAM
     Route: 041
     Dates: start: 20240829
  2. TISLELIZUMAB [Suspect]
     Active Substance: TISLELIZUMAB
     Indication: Metastases to lymph nodes
  3. DOCETAXEL [Concomitant]
     Active Substance: DOCETAXEL
     Indication: Squamous cell carcinoma of the hypopharynx
     Dosage: 140 MILLIGRAM
     Route: 041
     Dates: start: 20240829
  4. DOCETAXEL [Concomitant]
     Active Substance: DOCETAXEL
     Indication: Metastases to lymph nodes
  5. NEDAPLATIN [Concomitant]
     Active Substance: NEDAPLATIN
     Indication: Squamous cell carcinoma of the hypopharynx
     Dosage: 50 MILLIGRAM
     Route: 041
     Dates: start: 20240829
  6. NEDAPLATIN [Concomitant]
     Active Substance: NEDAPLATIN
     Indication: Metastases to lymph nodes

REACTIONS (3)
  - Drug eruption [Recovering/Resolving]
  - Dizziness [Unknown]
  - Headache [Unknown]

NARRATIVE: CASE EVENT DATE: 20240901
